FAERS Safety Report 5072151-2 (Version None)
Quarter: 2006Q3

REPORT INFORMATION
  Report Type: 
  Country: None (occurrence: None)
  Receive Date: 20060717
  Receipt Date: 20060310
  Transmission Date: 20061208
  Serious: No
  Sender: FDA-Public Use
  Company Number: 2006000590

PATIENT
  Age: 57 Year
  Sex: Female

DRUGS (1)
  1. TARCEVA [Suspect]
     Indication: LUNG NEOPLASM MALIGNANT
     Dosage: 150 MG (QD), ORAL
     Route: 048

REACTIONS (9)
  - ACNE [None]
  - COUGH [None]
  - DRY EYE [None]
  - DRY SKIN [None]
  - EYE PRURITUS [None]
  - INFLUENZA [None]
  - RASH MACULO-PAPULAR [None]
  - SKIN FISSURES [None]
  - VISION BLURRED [None]
